FAERS Safety Report 10879220 (Version 2)
Quarter: 2015Q1

REPORT INFORMATION
  Report Type: Spontaneous
  Country: JP (occurrence: JP)
  Receive Date: 20150302
  Receipt Date: 20150324
  Transmission Date: 20150721
  Serious: Yes (Life-Threatening)
  Sender: FDA-Public Use
  Company Number: JP-MUNDIPHARMA DS AND PHARMACOVIGILANCE-GBR-2015-0025851

PATIENT
  Age: 84 Year
  Sex: Female

DRUGS (10)
  1. NAUZELIN [Concomitant]
     Active Substance: DOMPERIDONE
     Indication: NAUSEA
     Dosage: 30 MG, DAILY
     Route: 048
     Dates: end: 20150217
  2. OXYCODONE HCL INJECTABLE [Suspect]
     Active Substance: OXYCODONE HYDROCHLORIDE
     Dosage: 12 MG, DAILY
     Route: 058
     Dates: start: 20150217, end: 20150218
  3. OXYCODONE HCL IR POWDER 0.5% [Concomitant]
     Active Substance: OXYCODONE HYDROCHLORIDE
     Dosage: 5 MG, QID
     Route: 048
     Dates: start: 20150122
  4. MAGLAX [Concomitant]
     Active Substance: MAGNESIUM OXIDE
     Indication: CONSTIPATION
     Dosage: 1.8 G, DAILY
     Route: 048
     Dates: end: 20150217
  5. SERENACE [Concomitant]
     Active Substance: HALOPERIDOL
     Indication: NAUSEA
     Dosage: 1 MG, DAILY
     Route: 058
     Dates: start: 20150217, end: 20150218
  6. OXYCODONE HCL INJECTABLE [Suspect]
     Active Substance: OXYCODONE HYDROCHLORIDE
     Dosage: 0.3 MG, RESCUE DOSE
     Route: 058
     Dates: start: 20150217, end: 20150217
  7. AMIGRAND [Concomitant]
     Indication: HYPOPHAGIA
     Dosage: 500 ML, DAILY
     Route: 042
     Dates: start: 20150217, end: 20150301
  8. OXYCODONE HCL INJECTABLE [Suspect]
     Active Substance: OXYCODONE HYDROCHLORIDE
     Indication: CANCER PAIN
     Dosage: 6 MG,  DAILY
     Route: 058
     Dates: start: 20150220
  9. OXYCODONE HCL INJECTABLE [Suspect]
     Active Substance: OXYCODONE HYDROCHLORIDE
     Dosage: 0.3 MG, RESCUE DOSE
     Route: 058
     Dates: start: 20150217, end: 20150217
  10. OXYCODONE HCL IR POWDER 0.5% [Concomitant]
     Active Substance: OXYCODONE HYDROCHLORIDE
     Indication: CANCER PAIN
     Dosage: 5 MG, AM
     Route: 048
     Dates: start: 20150217, end: 20150217

REACTIONS (3)
  - Blood glucose decreased [Recovered/Resolved]
  - Respiratory depression [Recovered/Resolved]
  - Altered state of consciousness [Recovered/Resolved with Sequelae]

NARRATIVE: CASE EVENT DATE: 20150218
